FAERS Safety Report 23589146 (Version 1)
Quarter: 2024Q1

REPORT INFORMATION
  Report Type: Spontaneous
  Country: US (occurrence: US)
  Receive Date: 20240303
  Receipt Date: 20240303
  Transmission Date: 20240410
  Serious: No
  Sender: FDA-Public Use
  Company Number: US-BAUSCHBL-2024BNL002469

PATIENT
  Age: 30 Year
  Sex: Female

DRUGS (3)
  1. LUMIFY [Suspect]
     Active Substance: BRIMONIDINE TARTRATE
     Indication: Routine health maintenance
     Route: 065
     Dates: start: 20240211
  2. DEVICE [Suspect]
     Active Substance: DEVICE
     Indication: Routine health maintenance
     Route: 065
  3. DEVICE [Suspect]
     Active Substance: DEVICE
     Indication: Routine health maintenance
     Route: 065

REACTIONS (3)
  - Eye infection [Recovering/Resolving]
  - Dry eye [Recovering/Resolving]
  - Vision blurred [Recovering/Resolving]

NARRATIVE: CASE EVENT DATE: 20240215
